FAERS Safety Report 5223284-9 (Version None)
Quarter: 2007Q1

REPORT INFORMATION
  Report Type: 
  Country: None (occurrence: None)
  Receive Date: 20061201
  Receipt Date: 20061016
  Transmission Date: 20070707
  Serious: No
  Sender: FDA-Public Use
  Company Number: 2006PV017928

PATIENT
  Age: 62 Year
  Sex: Female
  Weight: 106.5953 kg

DRUGS (8)
  1. BYETTA [Suspect]
     Indication: DIABETES MELLITUS NON-INSULIN-DEPENDENT
     Dosage: SEE IMAGE
     Route: 058
     Dates: start: 20060718, end: 20060719
  2. BYETTA [Suspect]
     Indication: DIABETES MELLITUS NON-INSULIN-DEPENDENT
     Dosage: SEE IMAGE
     Route: 058
     Dates: start: 20060724, end: 20060801
  3. BYETTA [Suspect]
     Indication: DIABETES MELLITUS NON-INSULIN-DEPENDENT
     Dosage: SEE IMAGE
     Route: 058
     Dates: start: 20060801
  4. BYETTA [Suspect]
  5. LANTUS [Concomitant]
  6. GLIMEPIRIDE [Concomitant]
  7. METFORMIN HCL [Concomitant]
  8. ACTOS [Concomitant]

REACTIONS (4)
  - BLOOD GLUCOSE DECREASED [None]
  - NAUSEA [None]
  - VISION BLURRED [None]
  - VOMITING [None]
